FAERS Safety Report 17604034 (Version 1)
Quarter: 2020Q1

REPORT INFORMATION
  Report Type: Spontaneous
  Country: US (occurrence: US)
  Receive Date: 20200328
  Receipt Date: 20200328
  Transmission Date: 20200409
  Serious: No
  Sender: FDA-Public Use
  Company Number: None

PATIENT
  Age: 38 Year
  Sex: Female

DRUGS (1)
  1. HUMIRA [Suspect]
     Active Substance: ADALIMUMAB
     Indication: PSORIATIC ARTHROPATHY
     Dosage: ?          OTHER STRENGTH:40MG/0.8ML;OTHER FREQUENCY:EVERY 14 DAYS;?
     Route: 058
     Dates: start: 20191023

REACTIONS (2)
  - Musculoskeletal disorder [None]
  - Muscular weakness [None]

NARRATIVE: CASE EVENT DATE: 20200305
